FAERS Safety Report 16304441 (Version 1)
Quarter: 2019Q2

REPORT INFORMATION
  Report Type: Spontaneous
  Country: US (occurrence: US)
  Receive Date: 20190513
  Receipt Date: 20190513
  Transmission Date: 20190711
  Serious: No
  Sender: FDA-Public Use
  Company Number: US-PFIZER INC-2018061321

PATIENT
  Sex: Female

DRUGS (1)
  1. IBRANCE [Suspect]
     Active Substance: PALBOCICLIB
     Dosage: 100 MG, 2X/DAY (TOOK 2 OF IBRANCE 100MG TABLETS THIS MORNING)

REACTIONS (2)
  - Accidental overdose [Unknown]
  - Neoplasm progression [Unknown]
